FAERS Safety Report 12703925 (Version 1)
Quarter: 2016Q3

REPORT INFORMATION
  Report Type: Spontaneous
  Country: US (occurrence: US)
  Receive Date: 20160831
  Receipt Date: 20160831
  Transmission Date: 20161109
  Serious: Yes (Other)
  Sender: FDA-Public Use
  Company Number: US-BRISTOL-MYERS SQUIBB COMPANY-BMS-2016-070522

PATIENT
  Sex: Female

DRUGS (2)
  1. KENALOG-40 [Suspect]
     Active Substance: TRIAMCINOLONE ACETONIDE
     Indication: ARTHRITIS
     Dosage: 1 C
     Route: 065
     Dates: start: 20160802
  2. SYNTHROID [Concomitant]
     Active Substance: LEVOTHYROXINE SODIUM
     Indication: PRODUCT USED FOR UNKNOWN INDICATION
     Route: 065

REACTIONS (12)
  - Mental disorder [Unknown]
  - Confusional state [Unknown]
  - Hot flush [Unknown]
  - Dyspnoea [Unknown]
  - Eye disorder [Unknown]
  - Headache [Unknown]
  - Electrocardiogram abnormal [Unknown]
  - Vision blurred [Unknown]
  - Chest discomfort [Unknown]
  - Muscle spasms [Unknown]
  - Asthenia [Unknown]
  - Fatigue [Unknown]
